FAERS Safety Report 5937775-6 (Version None)
Quarter: 2008Q4

REPORT INFORMATION
  Report Type: 
  Country: None (occurrence: None)
  Receive Date: 20081031
  Receipt Date: 20081023
  Transmission Date: 20090506
  Serious: Yes (Other)
  Sender: FDA-Public Use
  Company Number: US-JNJCH-2008052989

PATIENT
  Age: 74 Year
  Sex: Male
  Weight: 81.6 kg

DRUGS (1)
  1. BENADRYL [Suspect]
     Indication: NASOPHARYNGITIS
     Dosage: TEXT:ONE TABLET EVERY 4 HOURS
     Route: 048
     Dates: start: 20081020, end: 20081023

REACTIONS (1)
  - HAEMATURIA [None]
